FAERS Safety Report 4818449-1 (Version None)
Quarter: 2005Q4

REPORT INFORMATION
  Report Type: 
  Country: None (occurrence: None)
  Receive Date: 20051102
  Receipt Date: 20051025
  Transmission Date: 20060501
  Serious: Yes (Other)
  Sender: FDA-Public Use
  Company Number: PHNR2005AU01559

PATIENT
  Sex: Female

DRUGS (1)
  1. AREDIA [Suspect]
     Indication: BREAST CANCER

REACTIONS (2)
  - OSTEONECROSIS [None]
  - PAIN IN JAW [None]
